FAERS Safety Report 23881034 (Version 1)
Quarter: 2024Q2

REPORT INFORMATION
  Report Type: Spontaneous
  Country: US (occurrence: None)
  Receive Date: 20240521
  Receipt Date: 20240521
  Transmission Date: 20240716
  Serious: Yes (Hospitalization)
  Sender: FDA-Public Use
  Company Number: None

PATIENT
  Age: 27 Year
  Sex: Male

DRUGS (4)
  1. ZONISAMIDE [Suspect]
     Active Substance: ZONISAMIDE
     Indication: Agitation
     Dosage: FREQUENCY : AT BEDTIME;?
     Route: 048
     Dates: start: 20240107
  2. ZONISAMIDE [Suspect]
     Active Substance: ZONISAMIDE
     Indication: Confusional state
  3. ZONISAMIDE [Suspect]
     Active Substance: ZONISAMIDE
     Indication: Hallucination
  4. OXCARBAZEPINE [Suspect]
     Active Substance: OXCARBAZEPINE
     Dosage: FREQUENCY : TWICE A DAY;?
     Route: 048

REACTIONS (7)
  - Agitation [None]
  - Mood swings [None]
  - Abnormal behaviour [None]
  - Hallucinations, mixed [None]
  - Confusional state [None]
  - Encephalopathy [None]
  - Hyperammonaemia [None]

NARRATIVE: CASE EVENT DATE: 20240309
